FAERS Safety Report 24434709 (Version 2)
Quarter: 2024Q4

REPORT INFORMATION
  Report Type: Spontaneous
  Country: US (occurrence: US)
  Receive Date: 20241014
  Receipt Date: 20241021
  Transmission Date: 20250114
  Serious: Yes (Hospitalization, Other)
  Sender: PFIZER
  Company Number: US-PFIZER INC-PV202400131565

PATIENT
  Age: 61 Year
  Sex: Male

DRUGS (1)
  1. HEPARIN SODIUM [Suspect]
     Active Substance: HEPARIN SODIUM
     Dosage: UNFRACTIONATED
     Route: 058

REACTIONS (2)
  - Heparin-induced thrombocytopenia [Unknown]
  - Ocular ischaemic syndrome [Not Recovered/Not Resolved]
